FAERS Safety Report 16854219 (Version 1)
Quarter: 2019Q3

REPORT INFORMATION
  Report Type: Spontaneous
  Country: US (occurrence: US)
  Receive Date: 20190926
  Receipt Date: 20190926
  Transmission Date: 20191005
  Serious: No
  Sender: FDA-Public Use
  Company Number: US-BION-007389

PATIENT
  Age: 59 Year
  Sex: Female
  Weight: 85.28 kg

DRUGS (4)
  1. NORCO [Concomitant]
     Active Substance: ACETAMINOPHEN\HYDROCODONE BITARTRATE
     Indication: PAIN
  2. CALCIUM PANTOTHENATE/NICOTINAMIDE/PROCAINE HYDROCHLORIDE/PYRIDOXINE HYDROCHLORIDE/RIBOFLAVIN/THIAMIN [Concomitant]
  3. GABAPENTIN. [Concomitant]
     Active Substance: GABAPENTIN
     Indication: NEUROPATHY PERIPHERAL
  4. IMODIUM A-D [Suspect]
     Active Substance: LOPERAMIDE HYDROCHLORIDE
     Indication: DIARRHOEA
     Dosage: 2 SOFT GELS FIRST LOOSE STOOL, 1 SOFT GEL AFTER EACH SUBSEQUENT LOOSE STOOL
     Route: 048
     Dates: start: 20180201, end: 20180531

REACTIONS (2)
  - Hallucination [Not Recovered/Not Resolved]
  - Drug ineffective [Not Recovered/Not Resolved]

NARRATIVE: CASE EVENT DATE: 20180203
